FAERS Safety Report 8131903-2 (Version None)
Quarter: 2012Q1

REPORT INFORMATION
  Report Type: 
  Country: None (occurrence: None)
  Receive Date: 20120208
  Receipt Date: 20120202
  Transmission Date: 20120608
  Serious: Yes (Other)
  Sender: FDA-Public Use
  Company Number: DSA_03547_2011

PATIENT
  Sex: Female
  Weight: 83.9154 kg

DRUGS (15)
  1. LIPITOR (UNKNOWN UNTIL CONTINUING) [Concomitant]
  2. VANIQA [Suspect]
     Indication: HAIR GROWTH ABNORMAL
     Dosage: (1 DF BID, TO THE SIDES OF HER FACE TOPICAL)
     Route: 061
     Dates: start: 20111114, end: 20111117
  3. CATALYN (VIT) (UNKNOWN UNTIL CONTINUING) [Concomitant]
  4. COLACE (UNKNOWN UNTIL CONTINUING) [Concomitant]
  5. ASPIRIN (UNKNOWN UNTIL CONTINUING) [Concomitant]
  6. BYSTOLIC (UNKNOWN UNTIL CONTINUING) [Concomitant]
  7. REFRESH PLUS (UNKNOWN UNTIL CONTINUING) [Concomitant]
  8. FLAXSEED OIL (UNKNOWN UNTIL CONTINUING) [Concomitant]
  9. NITROGLYCERIN (UNKNOWN UNTIL CONTINUING) [Concomitant]
  10. PREMARIN (UNKNOWN UNTIL CONTINUING) [Concomitant]
  11. NEXIUM /01479302/ (UNKNOWN UNTIL CONTINUING) [Concomitant]
  12. ULTRACET (UNKNOWN UNTIL CONTINUING) [Concomitant]
  13. COZAAR (UNKNOWN UNTIL CONTINUING) [Concomitant]
  14. POTASSIUM CHLORIDE (UNKNOWN UNTIL CONTINUING) [Concomitant]
  15. FUROSEMIDE (UNKNOWN UNTIL CONTINUING) [Concomitant]

REACTIONS (3)
  - DRY THROAT [None]
  - RESPIRATORY DISTRESS [None]
  - THROAT TIGHTNESS [None]
